FAERS Safety Report 7470821-X (Version None)
Quarter: 2011Q2

REPORT INFORMATION
  Report Type: 
  Country: None (occurrence: None)
  Receive Date: 20110510
  Receipt Date: 20110506
  Transmission Date: 20111010
  Serious: Yes (Other)
  Sender: FDA-Public Use
  Company Number: US-PFIZER INC-2011098150

PATIENT
  Sex: Female
  Weight: 88.435 kg

DRUGS (10)
  1. METHADONE [Concomitant]
     Indication: BACK PAIN
     Dosage: 20 MG, 4X/DAY
     Route: 048
  2. ATIVAN [Concomitant]
     Dosage: UNK
  3. MORPHINE [Concomitant]
     Indication: BACK PAIN
     Dosage: 30 MG, 4X/DAY
     Route: 048
  4. XANAX [Concomitant]
     Indication: ANXIETY
     Dosage: 2 MG, UNK
     Route: 048
  5. XANAX [Concomitant]
     Indication: PANIC ATTACK
  6. ZANAFLEX [Concomitant]
     Indication: MUSCLE DISORDER
     Dosage: 4 MG, 3X/DAY
     Route: 048
  7. EFFEXOR [Suspect]
     Indication: ANXIETY DISORDER
  8. EFFEXOR [Suspect]
     Indication: MAJOR DEPRESSION
     Dosage: UNK
     Route: 048
  9. TRAZODONE [Concomitant]
     Indication: DEPRESSION
     Dosage: 150 MG, 1X/DAY
     Route: 048
  10. TRAZODONE [Concomitant]
     Indication: SLEEP DISORDER

REACTIONS (3)
  - PARAESTHESIA [None]
  - WITHDRAWAL SYNDROME [None]
  - NERVOUS SYSTEM DISORDER [None]
